FAERS Safety Report 12709708 (Version 1)
Quarter: 2016Q3

REPORT INFORMATION
  Report Type: Spontaneous
  Country: US (occurrence: US)
  Receive Date: 20160902
  Receipt Date: 20160902
  Transmission Date: 20161109
  Serious: Yes (Other)
  Sender: FDA-Public Use
  Company Number: US-TAIHO ONCOLOGY INC-EU-2016-02211

PATIENT
  Age: 64 Year
  Sex: Female
  Weight: 79.45 kg

DRUGS (2)
  1. PANTOPRAZOLE [Concomitant]
     Active Substance: PANTOPRAZOLE SODIUM
     Indication: GASTROOESOPHAGEAL REFLUX DISEASE
     Dosage: NI
  2. LONSURF [Suspect]
     Active Substance: TIPIRACIL HYDROCHLORIDE\TRIFLURIDINE
     Indication: COLON CANCER
     Dosage: CURRENT CYCLE 4 STARTED 01AUG2016
     Route: 048
     Dates: start: 2016, end: 20160805

REACTIONS (1)
  - Haemolytic anaemia [Recovering/Resolving]

NARRATIVE: CASE EVENT DATE: 20160808
